FAERS Safety Report 8307293-9 (Version None)
Quarter: 2012Q2

REPORT INFORMATION
  Report Type: 
  Country: None (occurrence: None)
  Receive Date: 20120424
  Receipt Date: 20120410
  Transmission Date: 20120825
  Serious: Yes (Hospitalization)
  Sender: FDA-Public Use
  Company Number: BR-SANOFI-AVENTIS-2012SA025176

PATIENT
  Age: 58 Year
  Sex: Female
  Weight: 66 kg

DRUGS (8)
  1. INSULIN LISPRO [Concomitant]
     Route: 058
     Dates: start: 20120401
  2. AAS INFANTIL [Concomitant]
     Route: 048
     Dates: start: 20080101
  3. AMITRIPTYLINE HCL [Concomitant]
     Indication: DEPRESSION
     Dosage: STRENGTH; 25 MG
     Route: 048
     Dates: start: 20080101
  4. DIAZEPAM [Concomitant]
     Dosage: STRENGTH; 10 MG
     Route: 048
     Dates: start: 20080101
  5. LANTUS [Suspect]
     Route: 058
     Dates: start: 20120201
  6. METAMIZOLE [Concomitant]
     Dosage: STRENGTH; 500 MG
     Route: 048
     Dates: start: 20080101
  7. ENALAPRIL MALEATE [Concomitant]
     Indication: BLOOD PRESSURE
     Route: 048
     Dates: start: 20110101
  8. LEVOTHYROXINE SODIUM [Concomitant]
     Indication: HYPOTHYROIDISM
     Dosage: STRENGTH; 112 MCG
     Route: 048
     Dates: start: 20050101

REACTIONS (5)
  - HYPERGLYCAEMIA [None]
  - PRESYNCOPE [None]
  - VISION BLURRED [None]
  - BLISTER [None]
  - BURNING SENSATION [None]
